FAERS Safety Report 24767784 (Version 1)
Quarter: 2024Q4

REPORT INFORMATION
  Report Type: Spontaneous
  Country: FR (occurrence: FR)
  Receive Date: 20241223
  Receipt Date: 20241223
  Transmission Date: 20250114
  Serious: Yes (Other)
  Sender: MYLAN
  Company Number: FR-PFIZER INC-PV202400158445

PATIENT

DRUGS (6)
  1. PREDNISONE [Suspect]
     Active Substance: PREDNISONE
     Indication: Mantle cell lymphoma
     Dosage: CYCLE (CYCLIC)
     Route: 065
  2. TORISEL [Suspect]
     Active Substance: TEMSIROLIMUS
     Indication: Mantle cell lymphoma
     Dosage: 15 MILLIGRAM, CYCLE, 15 MG, ADMINISTRATED AT D2, 8 AND 15
     Route: 065
  3. DOXORUBICIN HYDROCHLORIDE [Suspect]
     Active Substance: DOXORUBICIN HYDROCHLORIDE
     Indication: Mantle cell lymphoma
     Dosage: CYCLE (CYCLIC)
     Route: 065
  4. VINCRISTINE SULFATE [Suspect]
     Active Substance: VINCRISTINE SULFATE
     Indication: Mantle cell lymphoma
     Dosage: CYCLE (CYCLIC)
     Route: 065
  5. RITUXIMAB [Suspect]
     Active Substance: RITUXIMAB
     Indication: Mantle cell lymphoma
     Dosage: CYCLE (CYCLIC)
     Route: 065
  6. CYCLOPHOSPHAMIDE [Suspect]
     Active Substance: CYCLOPHOSPHAMIDE
     Indication: Mantle cell lymphoma
     Dosage: CYCLE (CYCLIC)
     Route: 065

REACTIONS (1)
  - Thrombocytopenia [Unknown]
